FAERS Safety Report 23551025 (Version 2)
Quarter: 2025Q1

REPORT INFORMATION
  Report Type: Spontaneous
  Country: BR (occurrence: BR)
  Receive Date: 20240222
  Receipt Date: 20250102
  Transmission Date: 20250408
  Serious: Yes (Hospitalization, Other)
  Sender: SANDOZ
  Company Number: BR-002147023-NVSC2023BR155041

PATIENT
  Age: 36 Year
  Sex: Female

DRUGS (6)
  1. AREDIA [Suspect]
     Active Substance: PAMIDRONATE DISODIUM
     Indication: Product used for unknown indication
     Route: 065
  2. KISQALI [Suspect]
     Active Substance: RIBOCICLIB
     Dosage: 3 DOSAGE FORM, QD
     Route: 065
     Dates: start: 20230601
  3. KISQALI [Suspect]
     Active Substance: RIBOCICLIB
     Indication: Breast cancer
     Route: 065
     Dates: start: 20230601
  4. ZOMETA [Suspect]
     Active Substance: ZOLEDRONIC ACID
     Indication: Product used for unknown indication
     Route: 065
  5. ANASTROZOLE [Concomitant]
     Active Substance: ANASTROZOLE
     Indication: Product used for unknown indication
     Route: 065
     Dates: start: 20231121
  6. TAMOXIFEN [Concomitant]
     Active Substance: TAMOXIFEN
     Indication: Product used for unknown indication
     Route: 065

REACTIONS (22)
  - Diarrhoea [Recovered/Resolved]
  - Vomiting [Recovered/Resolved]
  - Nausea [Recovering/Resolving]
  - Pyrexia [Not Recovered/Not Resolved]
  - Chest pain [Recovering/Resolving]
  - Dyspnoea [Recovered/Resolved]
  - Oxygen saturation decreased [Unknown]
  - Cardiac failure [Unknown]
  - Abdominal discomfort [Recovering/Resolving]
  - Feeling hot [Unknown]
  - Memory impairment [Recovering/Resolving]
  - Onychoclasis [Recovering/Resolving]
  - Palmar-plantar erythrodysaesthesia syndrome [Recovering/Resolving]
  - Lacrimation increased [Recovered/Resolved]
  - Eating disorder [Recovering/Resolving]
  - Gait disturbance [Recovering/Resolving]
  - Alopecia [Recovering/Resolving]
  - Asthenia [Recovering/Resolving]
  - Chills [Unknown]
  - Fatigue [Unknown]
  - Malaise [Recovered/Resolved]
  - Malaise [Recovered/Resolved]

NARRATIVE: CASE EVENT DATE: 20231124
